FAERS Safety Report 15644420 (Version 1)
Quarter: 2018Q4

REPORT INFORMATION
  Report Type: Spontaneous
  Country: FR (occurrence: FR)
  Receive Date: 20181121
  Receipt Date: 20181121
  Transmission Date: 20190205
  Serious: Yes (Hospitalization)
  Sender: FDA-Public Use
  Company Number: FR-PROVELL PHARMACEUTICALS-2059157

PATIENT
  Age: 66 Year
  Sex: Female

DRUGS (4)
  1. EUTHYROX [Suspect]
     Active Substance: LEVOTHYROXINE SODIUM
  2. EUTHYROX 100 NF [Suspect]
     Active Substance: LEVOTHYROXINE SODIUM
     Dates: start: 2017
  3. EUTHYROX [Suspect]
     Active Substance: LEVOTHYROXINE SODIUM
     Indication: POST PROCEDURAL HYPOTHYROIDISM
     Dates: start: 201703
  4. XARELTO [Concomitant]
     Active Substance: RIVAROXABAN
     Dates: start: 2017

REACTIONS (37)
  - Cerebral infarction [None]
  - Nausea [Recovered/Resolved]
  - Paraesthesia [None]
  - Dry mouth [None]
  - Myalgia [None]
  - Blood pressure abnormal [None]
  - Blood thyroid stimulating hormone decreased [None]
  - Poor peripheral circulation [None]
  - Mean cell haemoglobin decreased [Recovered/Resolved]
  - Weight increased [None]
  - Microcytic anaemia [None]
  - Back pain [None]
  - Pain in extremity [None]
  - Blood glucose increased [None]
  - Malaise [None]
  - Vomiting [Recovered/Resolved]
  - Dysgeusia [None]
  - Tendonitis [None]
  - C-reactive protein increased [Not Recovered/Not Resolved]
  - Mean cell haemoglobin concentration decreased [Recovered/Resolved]
  - Red cell distribution width decreased [Not Recovered/Not Resolved]
  - Abdominal pain [None]
  - Gastrointestinal disorder [None]
  - Blood creatinine increased [None]
  - Haematocrit decreased [Not Recovered/Not Resolved]
  - Mean platelet volume increased [Not Recovered/Not Resolved]
  - Decreased appetite [Recovered/Resolved]
  - Diarrhoea [None]
  - Arthralgia [None]
  - Red blood cell sedimentation rate increased [Not Recovered/Not Resolved]
  - Headache [Not Recovered/Not Resolved]
  - Anisocytosis [None]
  - Loss of personal independence in daily activities [None]
  - Glomerular filtration rate decreased [None]
  - Glycosylated haemoglobin increased [None]
  - Leukoencephalopathy [None]
  - Fatigue [Not Recovered/Not Resolved]

NARRATIVE: CASE EVENT DATE: 2017
